FAERS Safety Report 6175724-9 (Version None)
Quarter: 2009Q2

REPORT INFORMATION
  Report Type: 
  Country: None (occurrence: None)
  Receive Date: 20090501
  Receipt Date: 20090427
  Transmission Date: 20091009
  Serious: Yes (Death)
  Sender: FDA-Public Use
  Company Number: JP-ASTRAZENECA-2009SE01660

PATIENT
  Age: 75 Year
  Sex: Female

DRUGS (8)
  1. ECARD COMBINATION TABLETS HD [Suspect]
     Indication: HYPERTENSION
     Route: 048
     Dates: start: 20090416, end: 20090425
  2. ADALAT CC [Concomitant]
     Route: 048
  3. ZYLORIC [Concomitant]
     Route: 048
  4. EPL [Concomitant]
     Route: 048
  5. URSO 250 [Concomitant]
     Route: 048
  6. CYANOCOBALAMIN [Concomitant]
     Route: 065
  7. HYPEN [Concomitant]
     Route: 048
  8. DIART [Concomitant]
     Route: 048
     Dates: start: 20090416

REACTIONS (1)
  - DEATH [None]
